FAERS Safety Report 8261193 (Version 11)
Quarter: 2014Q4

REPORT INFORMATION
  Report Type: Report from Study
  Country: BR (occurrence: BR)
  Receive Date: 20111123
  Receipt Date: 20141103
  Transmission Date: 20150529
  Serious: Yes (Hospitalization, Other)
  Sender: FDA-Public Use
  Company Number: BR-ROCHE-1013584

PATIENT
  Age: 60 Year
  Sex: Female

DRUGS (20)
  1. XOLAIR [Suspect]
     Active Substance: OMALIZUMAB
     Route: 058
     Dates: start: 20110829
  2. PRELONE [Concomitant]
     Active Substance: PREDNISOLONE
     Route: 065
  3. PRELONE [Concomitant]
     Active Substance: PREDNISOLONE
     Dosage: TAPERING DOSE
     Route: 065
  4. DOMPERIDONE [Concomitant]
     Active Substance: DOMPERIDONE
     Route: 065
  5. PARACETAMOL [Concomitant]
     Active Substance: ACETAMINOPHEN
  6. PRELONE [Concomitant]
     Active Substance: PREDNISOLONE
     Dosage: FOR 10 DAYS
     Route: 065
  7. PRELONE [Concomitant]
     Active Substance: PREDNISOLONE
     Route: 065
  8. COMBIVENT [Concomitant]
     Active Substance: ALBUTEROL SULFATE\IPRATROPIUM BROMIDE
     Dosage: 20/120 MCG
     Route: 065
  9. CLENIL-A [Suspect]
     Active Substance: BECLOMETHASONE DIPROPIONATE
     Indication: PRODUCT USED FOR UNKNOWN INDICATION
     Route: 065
  10. LORATADINE. [Concomitant]
     Active Substance: LORATADINE
     Route: 065
  11. HYDROCHLOROTHIAZIDE. [Concomitant]
     Active Substance: HYDROCHLOROTHIAZIDE
     Route: 065
  12. LOSARTAN POTASSIUM. [Concomitant]
     Active Substance: LOSARTAN POTASSIUM
     Route: 065
  13. XOLAIR [Suspect]
     Active Substance: OMALIZUMAB
     Route: 058
     Dates: start: 201112
  14. PRELONE [Concomitant]
     Active Substance: PREDNISOLONE
     Indication: PRODUCT USED FOR UNKNOWN INDICATION
     Route: 065
     Dates: start: 20110920, end: 20111025
  15. VERAPAMIL [Concomitant]
     Active Substance: VERAPAMIL HYDROCHLORIDE
     Route: 065
  16. LEXOTAN [Concomitant]
     Active Substance: BROMAZEPAM
     Route: 065
  17. XOLAIR [Suspect]
     Active Substance: OMALIZUMAB
     Indication: ASTHMA
     Route: 058
     Dates: start: 201011
  18. XOLAIR [Suspect]
     Active Substance: OMALIZUMAB
     Route: 058
     Dates: start: 20120511
  19. SERETIDE [Concomitant]
     Active Substance: FLUTICASONE FUROATE\SALMETEROL XINAFOATE
     Dosage: 50/500 UG
     Route: 065
  20. PANTOPRAZOLE [Concomitant]
     Active Substance: PANTOPRAZOLE SODIUM
     Route: 065

REACTIONS (25)
  - Dysphonia [Not Recovered/Not Resolved]
  - Abdominal pain upper [Unknown]
  - Drug ineffective [Unknown]
  - Emotional disorder [Recovered/Resolved]
  - Asthma [Not Recovered/Not Resolved]
  - Lacrimation increased [Unknown]
  - Insomnia [Unknown]
  - Lung disorder [Unknown]
  - Herpes virus infection [Unknown]
  - Rhinitis allergic [Unknown]
  - Bronchial obstruction [Unknown]
  - Total lung capacity decreased [Recovered/Resolved]
  - Depression [Unknown]
  - Tremor [Unknown]
  - Gait disturbance [Unknown]
  - Respiratory distress [Not Recovered/Not Resolved]
  - Tachycardia [Not Recovered/Not Resolved]
  - Incorrect dose administered [Unknown]
  - Muscle spasms [Unknown]
  - Immunodeficiency [Unknown]
  - Herpes zoster [Unknown]
  - Obstructive airways disorder [Recovered/Resolved]
  - Dacryostenosis acquired [Recovered/Resolved]
  - Fatigue [Unknown]
  - Respiratory distress [Unknown]

NARRATIVE: CASE EVENT DATE: 201106
